FAERS Safety Report 24117821 (Version 1)
Quarter: 2024Q3

REPORT INFORMATION
  Report Type: Spontaneous
  Country: ES (occurrence: ES)
  Receive Date: 20240722
  Receipt Date: 20240722
  Transmission Date: 20241017
  Serious: Yes (Other)
  Sender: CELLTRION
  Company Number: ES-CELLTRION INC.-2024ES017316

PATIENT

DRUGS (12)
  1. ADALIMUMAB [Suspect]
     Active Substance: ADALIMUMAB\ISOPROPYL ALCOHOL
     Indication: Lupus-like syndrome
     Dosage: ()
     Dates: start: 20220501, end: 20221201
  2. INDACATEROL [Concomitant]
     Active Substance: INDACATEROL
     Indication: Bronchitis chronic
     Dosage: 150.0 MCG C/24 H; (); ROUTE OF ADMINISTRATION NOT APPLICABLE
     Dates: start: 20150424
  3. ADVENTAN [Concomitant]
     Indication: Dermatitis
     Dosage: 1.0 APLIC C/12 H; ()
     Route: 061
     Dates: start: 20210423
  4. LEVOTHYROXINE SODIUM [Concomitant]
     Active Substance: LEVOTHYROXINE SODIUM
     Indication: Hypothyroidism
     Dosage: 150.0 MCG A-DE
     Route: 048
     Dates: start: 20201006
  5. CHOLECALCIFEROL [Concomitant]
     Active Substance: CHOLECALCIFEROL
     Indication: Vitamin D deficiency
     Dosage: 25000.0 UI C/14 DIAS
     Route: 048
     Dates: start: 20211231
  6. OMEPRAZOLE [Concomitant]
     Active Substance: OMEPRAZOLE
     Indication: Gastritis
     Dosage: 20.0 MG A-DE; ()
     Route: 048
     Dates: start: 20190914
  7. FOLIC ACID [Concomitant]
     Active Substance: FOLIC ACID
     Indication: Systemic lupus erythematosus
     Dosage: 5.0 MG C/7 DIAS; ()
     Route: 048
     Dates: start: 20211124
  8. ESCITALOPRAM OXALATE [Concomitant]
     Active Substance: ESCITALOPRAM OXALATE
     Indication: Anxiety disorder
     Dosage: 5.0 MG DE; ()
     Route: 048
     Dates: start: 20211221
  9. HYDROXYCHLOROQUINE SULFATE [Concomitant]
     Active Substance: HYDROXYCHLOROQUINE SULFATE
     Indication: Dermatitis
     Dosage: 200.0 MG C/24 H; ()
     Route: 048
     Dates: start: 20220803
  10. STELARA [Concomitant]
     Active Substance: USTEKINUMAB
     Indication: Crohn^s disease
     Dosage: 90.0 MG
     Route: 058
     Dates: start: 20220415
  11. FERROUS SULFATE [Concomitant]
     Active Substance: FERROUS SULFATE
     Indication: Iron deficiency anaemia
     Dosage: 256.3 MG C/24 H AM; ()
     Route: 048
     Dates: start: 20130605
  12. CYANOCOBALAMIN [Concomitant]
     Active Substance: CYANOCOBALAMIN
     Indication: Hypothyroidism
     Dosage: 1.0 MG C/30 DIAS; ()
     Route: 030
     Dates: start: 20121211

REACTIONS (2)
  - Dermatitis [Recovering/Resolving]
  - Intentional product use issue [Unknown]

NARRATIVE: CASE EVENT DATE: 20220901
